FAERS Safety Report 10954381 (Version 2)
Quarter: 2015Q3

REPORT INFORMATION
  Report Type: Spontaneous
  Country: CA (occurrence: CA)
  Receive Date: 20150325
  Receipt Date: 20150724
  Transmission Date: 20151125
  Serious: Yes (Death, Other)
  Sender: FDA-Public Use
  Company Number: CA-GLAXOSMITHKLINE-CA2015GSK021860

PATIENT
  Age: 37 Year
  Sex: Male

DRUGS (1)
  1. TAFINLAR [Suspect]
     Active Substance: DABRAFENIB MESYLATE
     Indication: METASTATIC MALIGNANT MELANOMA
     Dosage: 300 MG, QD

REACTIONS (29)
  - Rhinorrhoea [Unknown]
  - Dysphagia [Unknown]
  - Influenza like illness [Unknown]
  - Chills [Unknown]
  - Nausea [Unknown]
  - Headache [Unknown]
  - Spinal cord neoplasm [Unknown]
  - Thermal burn [Unknown]
  - Abdominal neoplasm [Unknown]
  - Ocular hyperaemia [Recovering/Resolving]
  - Photophobia [Unknown]
  - Back pain [Unknown]
  - Pyrexia [Unknown]
  - Erythema [Unknown]
  - Neoplasm [Unknown]
  - Cough [Unknown]
  - Ear infection [Unknown]
  - Blister [Unknown]
  - Weight decreased [Recovering/Resolving]
  - Death [Fatal]
  - Insomnia [Unknown]
  - Swelling [Unknown]
  - Photopsia [Unknown]
  - Paraesthesia oral [Unknown]
  - Decreased appetite [Unknown]
  - Tongue disorder [Unknown]
  - Eye pain [Unknown]
  - Skin papilloma [Unknown]
  - Vomiting [Unknown]

NARRATIVE: CASE EVENT DATE: 201504
